FAERS Safety Report 4322581-9 (Version None)
Quarter: 2004Q1

REPORT INFORMATION
  Report Type: 
  Country: None (occurrence: None)
  Receive Date: 20040324
  Receipt Date: 20040302
  Transmission Date: 20041129
  Serious: No
  Sender: FDA-Public Use
  Company Number: PHBS2004VE03150

PATIENT
  Age: 21 Year
  Sex: Male

DRUGS (1)
  1. ZELMAC [Suspect]
     Indication: CONGENITAL MEGACOLON
     Dosage: 18 MG/DAY
     Route: 048

REACTIONS (5)
  - DRUG INEFFECTIVE [None]
  - FAECALOMA [None]
  - INTESTINAL OBSTRUCTION [None]
  - MEDICATION ERROR [None]
  - THERAPEUTIC RESPONSE DECREASED [None]
